FAERS Safety Report 10394042 (Version 2)
Quarter: 2014Q4

REPORT INFORMATION
  Report Type: Spontaneous
  Country: US (occurrence: None)
  Receive Date: 20140818
  Receipt Date: 20141103
  Transmission Date: 20150528
  Serious: Yes (Hospitalization, Other)
  Sender: FDA-Public Use
  Company Number: 2014-20142

PATIENT
  Age: 34 Year
  Sex: Male

DRUGS (1)
  1. ARCALYST [Suspect]
     Active Substance: RILONACEPT
     Indication: CRYOPYRIN ASSOCIATED PERIODIC SYNDROME
     Dates: start: 20141001, end: 20141001

REACTIONS (3)
  - Discomfort [None]
  - Pneumonia [None]
  - Urticaria [None]
